FAERS Safety Report 4528566-1 (Version None)
Quarter: 2004Q4

REPORT INFORMATION
  Report Type: 
  Country: None (occurrence: None)
  Receive Date: 20041216
  Receipt Date: 20041213
  Transmission Date: 20050328
  Serious: Yes (Death)
  Sender: FDA-Public Use
  Company Number: PHRM2004FR03645

PATIENT
  Age: 85 Year
  Sex: Male

DRUGS (2)
  1. ZOMETA [Suspect]
     Indication: METASTASES TO BONE
     Route: 042
     Dates: start: 20041110
  2. HMG COA REDUCTASE INHIBITORS [Concomitant]

REACTIONS (3)
  - CYTOLYTIC HEPATITIS [None]
  - NEUTROPENIA [None]
  - RENAL FAILURE ACUTE [None]
